FAERS Safety Report 12216522 (Version 1)
Quarter: 2016Q1

REPORT INFORMATION
  Report Type: Spontaneous
  Country: US (occurrence: None)
  Receive Date: 20160328
  Receipt Date: 20160328
  Transmission Date: 20160526
  Serious: Yes (Disabling)
  Sender: FDA-Public Use
  Company Number: None

PATIENT
  Age: 67 Year
  Sex: Female
  Weight: 90.72 kg

DRUGS (5)
  1. QSYMIA [Suspect]
     Active Substance: PHENTERMINE HYDROCHLORIDE\TOPIRAMATE
     Indication: OBESITY
     Dosage: 1 CAPSULE(S) IN THE MORNING TAKEN BY MOUTH
     Route: 048
     Dates: start: 20121109, end: 20150206
  2. SYNTHROID [Concomitant]
     Active Substance: LEVOTHYROXINE SODIUM
  3. METOPROLOL. [Concomitant]
     Active Substance: METOPROLOL
  4. MONIC [Concomitant]
  5. OXCARBAZAPINE [Concomitant]
     Active Substance: OXCARBAZEPINE

REACTIONS (4)
  - Retinal tear [None]
  - Blindness [None]
  - Retinal vein occlusion [None]
  - Macular fibrosis [None]

NARRATIVE: CASE EVENT DATE: 20151222
